FAERS Safety Report 6506889-4 (Version None)
Quarter: 2009Q4

REPORT INFORMATION
  Report Type: 
  Country: None (occurrence: None)
  Receive Date: 20091221
  Receipt Date: 20091208
  Transmission Date: 20100525
  Serious: Yes (Other)
  Sender: FDA-Public Use
  Company Number: US-SANOFI-AVENTIS-2009SA009168

PATIENT
  Age: 27 Year
  Sex: Female

DRUGS (3)
  1. LOVENOX [Suspect]
     Indication: OBESITY
     Route: 058
     Dates: start: 20090826
  2. LOVENOX [Suspect]
     Indication: IMMOBILE
     Route: 058
     Dates: start: 20090826
  3. LOVENOX [Suspect]
     Indication: HABITUAL ABORTION
     Route: 058
     Dates: start: 20090826

REACTIONS (2)
  - DRUG EXPOSURE DURING PREGNANCY [None]
  - PREMATURE LABOUR [None]
